FAERS Safety Report 11792857 (Version 2)
Quarter: 2016Q2

REPORT INFORMATION
  Report Type: Report from Study
  Country: BR (occurrence: BR)
  Receive Date: 20151202
  Receipt Date: 20160411
  Transmission Date: 20160815
  Serious: Yes (Other)
  Sender: FDA-Public Use
  Company Number: PHHY2015BR156457

PATIENT
  Sex: Female
  Weight: 68 kg

DRUGS (1)
  1. ACLASTA [Suspect]
     Active Substance: ZOLEDRONIC ACID
     Indication: OSTEOPOROSIS
     Dosage: 5 MG, Q12MO
     Route: 042
     Dates: start: 20141124

REACTIONS (2)
  - Bone cancer [Unknown]
  - Spinal disorder [Recovered/Resolved]
